FAERS Safety Report 9418864 (Version 1)
Quarter: 2013Q3

REPORT INFORMATION
  Report Type: Report from Study
  Country: CA (occurrence: CA)
  Receive Date: 20130725
  Receipt Date: 20130725
  Transmission Date: 20140515
  Serious: Yes (Hospitalization)
  Sender: FDA-Public Use
  Company Number: CA-JNJFOC-20130712907

PATIENT
  Age: 33 Year
  Sex: Male

DRUGS (5)
  1. REMICADE [Suspect]
     Indication: CROHN^S DISEASE
     Route: 042
     Dates: start: 20130516
  2. REMICADE [Suspect]
     Indication: CROHN^S DISEASE
     Route: 042
     Dates: start: 20080909
  3. IMURAN [Concomitant]
     Route: 065
  4. METRONIDAZOLE [Concomitant]
     Route: 065
  5. CIPROFLOXACIN [Concomitant]
     Route: 065

REACTIONS (1)
  - Surgery [Unknown]
